FAERS Safety Report 9735016 (Version 1)
Quarter: 2013Q4

REPORT INFORMATION
  Report Type: Spontaneous
  Country: US (occurrence: None)
  Receive Date: 20131204
  Receipt Date: 20131204
  Transmission Date: 20140711
  Serious: Yes (Death)
  Sender: FDA-Public Use
  Company Number: US-ALKEM-000397

PATIENT
  Age: 53 Year
  Sex: Female

DRUGS (5)
  1. GABAPENTIN (GABAPENTIN) [Suspect]
     Route: 048
  2. WARFARIN (WARFARIN) [Suspect]
     Route: 048
  3. HYDROMORPHONE (HYDROMORPHONE) [Suspect]
     Route: 048
  4. TIZANIDINE [Suspect]
     Route: 048
  5. DIAZEPAM (DIAZEPAM) [Suspect]
     Route: 048

REACTIONS (3)
  - Completed suicide [None]
  - Cardio-respiratory arrest [None]
  - Exposure via ingestion [None]
